FAERS Safety Report 6105421-7 (Version None)
Quarter: 2009Q1

REPORT INFORMATION
  Report Type: 
  Country: None (occurrence: None)
  Receive Date: 20090306
  Receipt Date: 20090223
  Transmission Date: 20090719
  Serious: Yes (Hospitalization)
  Sender: FDA-Public Use
  Company Number: TR-NOVOPROD-284796

PATIENT
  Age: 50 Year
  Sex: Female
  Weight: 74 kg

DRUGS (5)
  1. NOVORAPID [Suspect]
     Indication: TYPE 1 DIABETES MELLITUS
     Dosage: 11 IU MORNING, 11 IU AFTERNOON AND 12 IU EVENING
  2. LEVEMIR [Suspect]
     Indication: TYPE 1 DIABETES MELLITUS
     Dosage: 25 IU EVERY NIGHT
  3. THYROXINE [Concomitant]
     Dosage: .15 MG, QD
     Route: 048
  4. ETODOLAC [Concomitant]
     Dosage: 800 MG, QD
  5. STRONTIUM RANELATE [Concomitant]
     Dosage: 2 G, QD

REACTIONS (4)
  - BACK PAIN [None]
  - FATIGUE [None]
  - GRANULOMATOUS LIVER DISEASE [None]
  - SARCOIDOSIS [None]
